FAERS Safety Report 13340996 (Version 1)
Quarter: 2017Q1

REPORT INFORMATION
  Report Type: Spontaneous
  Country: US (occurrence: US)
  Receive Date: 20170316
  Receipt Date: 20170316
  Transmission Date: 20170428
  Serious: No
  Sender: FDA-Public Use
  Company Number: US-WARNER CHILCOTT, LLC-1064291

PATIENT
  Sex: Female

DRUGS (3)
  1. DELZICOL [Suspect]
     Active Substance: MESALAMINE
     Indication: COLITIS
     Route: 048
     Dates: start: 2016
  2. ASACOL HD [Suspect]
     Active Substance: MESALAMINE
     Route: 048
     Dates: start: 20160711
  3. ASACOL HD [Suspect]
     Active Substance: MESALAMINE
     Route: 048

REACTIONS (5)
  - Back pain [Not Recovered/Not Resolved]
  - Aura [Not Recovered/Not Resolved]
  - Photophobia [Not Recovered/Not Resolved]
  - Rectal haemorrhage [Not Recovered/Not Resolved]
  - Headache [Not Recovered/Not Resolved]

NARRATIVE: CASE EVENT DATE: 20160711
